FAERS Safety Report 6825638-3 (Version None)
Quarter: 2010Q3

REPORT INFORMATION
  Report Type: 
  Country: None (occurrence: None)
  Receive Date: 20100709
  Receipt Date: 20100311
  Transmission Date: 20110219
  Serious: Yes (Hospitalization, Other)
  Sender: FDA-Public Use
  Company Number: US-ASTRAZENECA-2007UW03197

PATIENT
  Age: 49 Year
  Sex: Male
  Weight: 104.3 kg

DRUGS (9)
  1. SEROQUEL [Suspect]
     Indication: DEPRESSION
     Route: 048
     Dates: start: 20031205, end: 20070324
  2. SEROQUEL [Suspect]
     Route: 048
     Dates: start: 20061205
  3. TRAZODONE HCL [Concomitant]
     Dates: start: 20040101
  4. TRAZODONE HCL [Concomitant]
     Dates: start: 20061205
  5. MIRTAZAPINE [Concomitant]
     Route: 048
     Dates: start: 20050101
  6. ACCUPRIL [Concomitant]
     Dates: start: 20061205
  7. GABAPENTIN [Concomitant]
     Dates: start: 20061205
  8. PRILOSEC [Concomitant]
     Dates: start: 20061205
  9. CAMPRAL 666 [Concomitant]
     Dosage: THREE TIMESS A DAY
     Dates: start: 20061205

REACTIONS (4)
  - CONVULSION [None]
  - DIABETIC NEUROPATHY [None]
  - SUICIDE ATTEMPT [None]
  - TYPE 2 DIABETES MELLITUS [None]
